FAERS Safety Report 10167692 (Version 2)
Quarter: 2014Q2

REPORT INFORMATION
  Report Type: Spontaneous
  Country: FR (occurrence: FR)
  Receive Date: 20140512
  Receipt Date: 20140515
  Transmission Date: 20141212
  Serious: Yes (Hospitalization, Other)
  Sender: FDA-Public Use
  Company Number: FR-PFIZER INC-2014128545

PATIENT
  Age: 24 Year
  Sex: Female

DRUGS (1)
  1. CYTOTEC [Suspect]
     Indication: LABOUR INDUCTION
     Dosage: 50 UG, 2X/DAY
     Route: 067
     Dates: start: 20001108, end: 20001108

REACTIONS (4)
  - Off label use [Unknown]
  - Uterine hypertonus [Recovered/Resolved]
  - Postpartum haemorrhage [Recovered/Resolved]
  - Umbilical hernia [Unknown]
